FAERS Safety Report 5311663-0 (Version None)
Quarter: 2007Q2

REPORT INFORMATION
  Report Type: 
  Country: None (occurrence: None)
  Receive Date: 20070426
  Receipt Date: 20070426
  Transmission Date: 20071010
  Serious: Yes (Hospitalization)
  Sender: FDA-Public Use
  Company Number: None

PATIENT
  Sex: Female
  Weight: 119 kg

DRUGS (1)
  1. CARBOPLATIN [Suspect]
     Dosage: 690 MG

REACTIONS (5)
  - CHILLS [None]
  - DIARRHOEA [None]
  - DRUG TOXICITY [None]
  - NEUTROPHIL COUNT DECREASED [None]
  - PYREXIA [None]
